FAERS Safety Report 7553123-2 (Version None)
Quarter: 2011Q2

REPORT INFORMATION
  Report Type: 
  Country: None (occurrence: None)
  Receive Date: 20110616
  Receipt Date: 20110603
  Transmission Date: 20111010
  Serious: Yes (Other)
  Sender: FDA-Public Use
  Company Number: TR-MYLANLABS-2011S1011804

PATIENT
  Sex: Male

DRUGS (1)
  1. MYCOPHENOLATE MEFETIL [Suspect]
     Indication: AUTOIMMUNE LYMPHOPROLIFERATIVE SYNDROME
     Route: 065

REACTIONS (1)
  - BENIGN INTRACRANIAL HYPERTENSION [None]
